FAERS Safety Report 12748062 (Version 2)
Quarter: 2017Q3

REPORT INFORMATION
  Report Type: Spontaneous
  Country: US (occurrence: US)
  Receive Date: 20160915
  Receipt Date: 20170914
  Transmission Date: 20171127
  Serious: No
  Sender: FDA-Public Use
  Company Number: US-ASTELLAS-2016US005525

PATIENT
  Sex: Male

DRUGS (3)
  1. XTANDI [Suspect]
     Active Substance: ENZALUTAMIDE
     Indication: PROSTATE CANCER METASTATIC
     Dosage: 160 MG (4 CAPSULES), ONCE DAILY BY MOUTH
     Route: 048
     Dates: start: 201501
  2. XTANDI [Suspect]
     Active Substance: ENZALUTAMIDE
     Route: 048
     Dates: start: 20150416, end: 201706
  3. XTANDI [Suspect]
     Active Substance: ENZALUTAMIDE
     Dosage: UNK UNK, UNKNOWN FREQ.
     Route: 048
     Dates: start: 20170823

REACTIONS (6)
  - Back pain [Not Recovered/Not Resolved]
  - Asthenia [Unknown]
  - Tremor [Recovered/Resolved]
  - Restless legs syndrome [Unknown]
  - Fatigue [Unknown]
  - Nerve compression [Unknown]

NARRATIVE: CASE EVENT DATE: 2016
